FAERS Safety Report 15443095 (Version 1)
Quarter: 2018Q3

REPORT INFORMATION
  Report Type: Spontaneous
  Country: US (occurrence: US)
  Receive Date: 20180928
  Receipt Date: 20180928
  Transmission Date: 20181010
  Serious: Yes (Death, Other)
  Sender: FDA-Public Use
  Company Number: US-INCYTE CORPORATION-2018IN009804

PATIENT

DRUGS (3)
  1. JAKAFI [Suspect]
     Active Substance: RUXOLITINIB
     Indication: NEOPLASM MALIGNANT
  2. JAKAFI [Suspect]
     Active Substance: RUXOLITINIB
     Indication: AGRANULOCYTOSIS
  3. JAKAFI [Suspect]
     Active Substance: RUXOLITINIB
     Indication: LUNG NEOPLASM MALIGNANT
     Dosage: 20 MG, BID
     Route: 048
     Dates: start: 20161113

REACTIONS (2)
  - Off label use [Unknown]
  - Death [Fatal]

NARRATIVE: CASE EVENT DATE: 20161113
